FAERS Safety Report 9776263 (Version 1)
Quarter: 2013Q4

REPORT INFORMATION
  Report Type: Spontaneous
  Country: IT (occurrence: IT)
  Receive Date: 20131220
  Receipt Date: 20131220
  Transmission Date: 20140711
  Serious: Yes (Hospitalization)
  Sender: FDA-Public Use
  Company Number: IT-WATSON-2013-23449

PATIENT
  Age: 45 Year
  Sex: Male

DRUGS (1)
  1. ANTABUSE [Suspect]
     Indication: ALCOHOLISM
     Dosage: 800 MG, DAILY
     Route: 048
     Dates: start: 20130706, end: 20130716

REACTIONS (3)
  - Sopor [Recovering/Resolving]
  - Polyneuropathy [Unknown]
  - Myalgia [Recovering/Resolving]
